FAERS Safety Report 25745605 (Version 1)
Quarter: 2025Q3

REPORT INFORMATION
  Report Type: Spontaneous
  Country: EU (occurrence: EU)
  Receive Date: 20250901
  Receipt Date: 20250901
  Transmission Date: 20251020
  Serious: Yes (Other)
  Sender: CELLTRION
  Company Number: EU-SANDOZ-SDZ2025SK057076

PATIENT

DRUGS (13)
  1. INFLIXIMAB [Suspect]
     Active Substance: INFLIXIMAB
     Indication: Colitis ulcerative
     Route: 065
     Dates: start: 201211
  2. INFLIXIMAB [Suspect]
     Active Substance: INFLIXIMAB
     Indication: Psoriasis
     Route: 065
     Dates: start: 201305, end: 201305
  3. USTEKINUMAB [Suspect]
     Active Substance: USTEKINUMAB
     Indication: Colitis ulcerative
     Route: 058
  4. USTEKINUMAB [Suspect]
     Active Substance: USTEKINUMAB
     Indication: Psoriasis
     Route: 065
     Dates: start: 202211, end: 202407
  5. USTEKINUMAB [Suspect]
     Active Substance: USTEKINUMAB
     Route: 065
     Dates: end: 20240731
  6. USTEKINUMAB [Suspect]
     Active Substance: USTEKINUMAB
     Route: 065
     Dates: start: 202411
  7. USTEKINUMAB [Suspect]
     Active Substance: USTEKINUMAB
     Route: 065
     Dates: start: 20220406
  8. IMURAN [Suspect]
     Active Substance: AZATHIOPRINE
     Indication: Colitis ulcerative
     Route: 065
  9. IMURAN [Suspect]
     Active Substance: AZATHIOPRINE
     Indication: Psoriasis
  10. VEDOLIZUMAB [Suspect]
     Active Substance: VEDOLIZUMAB
     Indication: Colitis ulcerative
     Route: 065
     Dates: start: 201605, end: 20220406
  11. VEDOLIZUMAB [Suspect]
     Active Substance: VEDOLIZUMAB
     Indication: Psoriasis
  12. VALTREX [Suspect]
     Active Substance: VALACYCLOVIR HYDROCHLORIDE
     Indication: Herpes zoster
     Route: 003
     Dates: start: 202010
  13. CYCLOSPORINE [Concomitant]
     Active Substance: CYCLOSPORINE
     Indication: Product used for unknown indication
     Route: 065

REACTIONS (6)
  - C-reactive protein increased [Unknown]
  - Keratosis pilaris [Unknown]
  - Iron deficiency anaemia [Unknown]
  - Pyelonephritis [Unknown]
  - Maternal exposure during pregnancy [Unknown]
  - Therapeutic response decreased [Unknown]
